FAERS Safety Report 4514177-0 (Version None)
Quarter: 2004Q4

REPORT INFORMATION
  Report Type: 
  Country: None (occurrence: None)
  Receive Date: 20041124
  Receipt Date: 20041116
  Transmission Date: 20050328
  Serious: Yes (Death, Hospitalization)
  Sender: FDA-Public Use
  Company Number: STA-AE-04-MTX-541

PATIENT
  Age: 67 Year
  Sex: Female

DRUGS (17)
  1. RHEUMATREX [Suspect]
     Indication: RHEUMATOID ARTHRITIS
     Dosage: 4 MG 1X PER 1 WK, ORAL
     Route: 048
     Dates: start: 20021001, end: 20040408
  2. RHEUMATREX [Suspect]
     Indication: RHEUMATOID ARTHRITIS
     Dosage: 4 MG 1X PER 1 WK, ORAL
     Route: 048
     Dates: start: 20021001, end: 20040415
  3. RHEUMATREX [Suspect]
     Indication: RHEUMATOID ARTHRITIS
     Dosage: 4 MG 1X PER 1 WK, ORAL
     Route: 048
     Dates: start: 20040415, end: 20041002
  4. RHEUMATREX [Suspect]
     Indication: RHEUMATOID ARTHRITIS
     Dosage: 4 MG 1X PER 1 WK, ORAL
     Route: 048
     Dates: start: 20040929, end: 20041002
  5. RHEUMATREX [Suspect]
     Indication: RHEUMATOID ARTHRITIS
     Dosage: 6 MG 1X PER 1 WK, ORAL
     Route: 048
     Dates: start: 20040412, end: 20040901
  6. CALCITROL (CALCIUM CARBONATE/ERGOCALCIFEROL/RETINOL) [Concomitant]
  7. EPINASTINE HYDROCHLORIDE (EPINASTINE HYDROCHLORIDE) [Concomitant]
  8. LOXONIN (LOXOPROFEN SODIUM) [Concomitant]
  9. MEFENAMIC ACID [Concomitant]
  10. NORVASC [Concomitant]
  11. PREDNISOLONE [Concomitant]
  12. DIOVAN [Concomitant]
  13. LEUCOVORIN CALCIUM [Concomitant]
  14. KARY UNI (PIRENOXINE) [Concomitant]
  15. OMEPRAZOLE [Concomitant]
  16. FLUITRAN (TRICHLORMETHIAZIDE) [Concomitant]
  17. OPALMON (LIMAPROST) [Concomitant]

REACTIONS (17)
  - ALOPECIA [None]
  - BONE MARROW DEPRESSION [None]
  - BRAIN DEATH [None]
  - CARDIAC ARREST [None]
  - CLEFT LIP [None]
  - DEPRESSED LEVEL OF CONSCIOUSNESS [None]
  - DIZZINESS [None]
  - EPISTAXIS [None]
  - HAEMORRHAGIC DIATHESIS [None]
  - HEADACHE [None]
  - HYPOTHYROIDISM [None]
  - INTERSTITIAL LUNG DISEASE [None]
  - LIP HAEMORRHAGE [None]
  - MOUTH BREATHING [None]
  - PARAESTHESIA [None]
  - RESPIRATORY FAILURE [None]
  - STOMATITIS [None]
